FAERS Safety Report 22296152 (Version 1)
Quarter: 2023Q2

REPORT INFORMATION
  Report Type: Spontaneous
  Country: CA (occurrence: CA)
  Receive Date: 20230508
  Receipt Date: 20230508
  Transmission Date: 20230722
  Serious: Yes (Life-Threatening, Hospitalization, Other)
  Sender: FDA-Public Use
  Company Number: CA-TEVA-2023-CA-2883460

PATIENT
  Age: 64 Year
  Sex: Male
  Weight: 89 kg

DRUGS (15)
  1. ATENOLOL [Suspect]
     Active Substance: ATENOLOL
     Indication: Hypertension
     Dosage: 50 MILLIGRAM DAILY;
     Route: 048
  2. METFORMIN HYDROCHLORIDE [Suspect]
     Active Substance: METFORMIN HYDROCHLORIDE
     Indication: Diabetes mellitus
     Dosage: 2000 MILLIGRAM DAILY;
     Route: 048
  3. RAMIPRIL [Suspect]
     Active Substance: RAMIPRIL
     Indication: Hypertension
     Dosage: 5 MILLIGRAM DAILY;
     Route: 048
  4. DAPAGLIFLOZIN [Suspect]
     Active Substance: DAPAGLIFLOZIN
     Indication: Respiratory syncytial virus bronchiolitis
     Route: 065
  5. DAPAGLIFLOZIN [Suspect]
     Active Substance: DAPAGLIFLOZIN
     Indication: Diabetes mellitus
     Dosage: 10 MILLIGRAM DAILY;
     Route: 048
  6. APIDRA [Concomitant]
     Active Substance: INSULIN GLULISINE
     Indication: Diabetes mellitus
     Route: 058
  7. APIDRA [Concomitant]
     Active Substance: INSULIN GLULISINE
     Route: 058
  8. DULAGLUTIDE [Concomitant]
     Active Substance: DULAGLUTIDE
     Indication: Diabetes mellitus
     Route: 058
  9. DULAGLUTIDE [Concomitant]
     Active Substance: DULAGLUTIDE
     Route: 058
  10. INSULIN NOS [Concomitant]
     Active Substance: INSULIN NOS
     Indication: Product used for unknown indication
     Route: 065
  11. INSULIN NOS [Concomitant]
     Active Substance: INSULIN NOS
     Route: 065
  12. LANTUS [Concomitant]
     Active Substance: INSULIN GLARGINE
     Indication: Diabetes mellitus
     Route: 058
  13. LANTUS [Concomitant]
     Active Substance: INSULIN GLARGINE
     Route: 058
  14. ROSUVASTATIN [Concomitant]
     Active Substance: ROSUVASTATIN
     Indication: Hypercholesterolaemia
     Route: 048
  15. ROSUVASTATIN [Concomitant]
     Active Substance: ROSUVASTATIN
     Route: 048

REACTIONS (7)
  - Dyspnoea [Recovered/Resolved]
  - Headache [Recovered/Resolved]
  - Hyperglycaemia [Recovered/Resolved]
  - Hypotension [Recovered/Resolved]
  - Metabolic acidosis [Recovered/Resolved]
  - Pulmonary oedema [Recovered/Resolved]
  - C-reactive protein increased [Recovered/Resolved]
